FAERS Safety Report 18509705 (Version 4)
Quarter: 2023Q1

REPORT INFORMATION
  Report Type: Other
  Country: US (occurrence: None)
  Receive Date: 20201117
  Receipt Date: 20230105
  Transmission Date: 20230418
  Serious: Yes (Hospitalization, Other)
  Sender: FDA-Public Use
  Company Number: US-ROCHE-2527398

PATIENT
  Age: 62 Year
  Sex: Male
  Weight: 72.640 kg

DRUGS (13)
  1. OCREVUS [Suspect]
     Active Substance: OCRELIZUMAB
     Indication: Primary progressive multiple sclerosis
     Dosage: FOLLOWED BY 600 MG, ONCE IN 6 MONTHS
     Route: 042
     Dates: start: 2018
  2. OCREVUS [Suspect]
     Active Substance: OCRELIZUMAB
     Indication: Multiple sclerosis
     Route: 042
     Dates: start: 20180119
  3. OCREVUS [Suspect]
     Active Substance: OCRELIZUMAB
     Indication: Relapsing multiple sclerosis
     Route: 042
     Dates: start: 20180202
  4. OCREVUS [Suspect]
     Active Substance: OCRELIZUMAB
     Route: 042
     Dates: start: 20180824
  5. OCREVUS [Suspect]
     Active Substance: OCRELIZUMAB
     Route: 042
     Dates: start: 20190206
  6. OCREVUS [Suspect]
     Active Substance: OCRELIZUMAB
     Route: 042
     Dates: start: 20190809
  7. OCREVUS [Suspect]
     Active Substance: OCRELIZUMAB
     Route: 042
     Dates: start: 20180806
  8. OCREVUS [Suspect]
     Active Substance: OCRELIZUMAB
     Route: 042
     Dates: start: 20180119
  9. OCREVUS [Suspect]
     Active Substance: OCRELIZUMAB
     Route: 042
     Dates: start: 202002
  10. COPAXONE [Concomitant]
     Active Substance: GLATIRAMER ACETATE
  11. TOLTERODINE [Concomitant]
     Active Substance: TOLTERODINE
     Indication: Bladder spasm
     Dosage: FOR BLADDER CONTROL
  12. TYSABRI [Concomitant]
     Active Substance: NATALIZUMAB
  13. ELIQUIS [Concomitant]
     Active Substance: APIXABAN

REACTIONS (6)
  - Thrombosis [Recovered/Resolved]
  - Tremor [Not Recovered/Not Resolved]
  - Mobility decreased [Unknown]
  - Fall [Unknown]
  - Drug ineffective [Unknown]
  - Herpes zoster [Recovering/Resolving]

NARRATIVE: CASE EVENT DATE: 20200801
